FAERS Safety Report 4485753-9 (Version None)
Quarter: 2004Q4

REPORT INFORMATION
  Report Type: 
  Country: None (occurrence: None)
  Receive Date: 20041026
  Receipt Date: 20041019
  Transmission Date: 20050328
  Serious: Yes (Death)
  Sender: FDA-Public Use
  Company Number: US-BRISTOL-MYERS SQUIBB COMPANY-12741567

PATIENT
  Age: 58 Year
  Sex: Male

DRUGS (1)
  1. METFORMIN HCL [Suspect]
     Dosage: DOSAGE FORM = TABLETS
     Route: 048

REACTIONS (3)
  - CARDIO-RESPIRATORY ARREST [None]
  - COMPLETED SUICIDE [None]
  - INTENTIONAL OVERDOSE [None]
